FAERS Safety Report 7946391-6 (Version None)
Quarter: 2011Q4

REPORT INFORMATION
  Report Type: 
  Country: None (occurrence: None)
  Receive Date: 20111129
  Receipt Date: 20111122
  Transmission Date: 20120403
  Serious: Yes (Disabling, Other)
  Sender: FDA-Public Use
  Company Number: US-MERCK-1107USA03585

PATIENT
  Age: 51 Year
  Sex: Female

DRUGS (1)
  1. FOSAMAX [Suspect]
     Indication: OSTEOPENIA
     Route: 048
     Dates: start: 20060101, end: 20100101

REACTIONS (13)
  - ABSCESS [None]
  - TEMPOROMANDIBULAR JOINT SYNDROME [None]
  - TOOTH DISORDER [None]
  - GINGIVAL BLEEDING [None]
  - OSTEONECROSIS OF JAW [None]
  - OSTEOMYELITIS [None]
  - BONE DISORDER [None]
  - ORAL INFECTION [None]
  - DENTAL CARIES [None]
  - PERIODONTAL DISEASE [None]
  - IMPAIRED HEALING [None]
  - ORAL DISORDER [None]
  - GINGIVAL DISORDER [None]
